FAERS Safety Report 12442414 (Version 1)
Quarter: 2016Q2

REPORT INFORMATION
  Report Type: Spontaneous
  Country: KR (occurrence: KR)
  Receive Date: 20160607
  Receipt Date: 20160607
  Transmission Date: 20160815
  Serious: Yes (Other)
  Sender: FDA-Public Use
  Company Number: KR-PFIZER INC-2016285575

PATIENT
  Sex: Female

DRUGS (1)
  1. ALDACTONE [Suspect]
     Active Substance: SPIRONOLACTONE
     Route: 048

REACTIONS (3)
  - Condition aggravated [Unknown]
  - Blood creatinine increased [Unknown]
  - Diabetes mellitus [Unknown]
